FAERS Safety Report 4648651-3 (Version None)
Quarter: 2005Q2

REPORT INFORMATION
  Report Type: 
  Country: None (occurrence: None)
  Receive Date: 20050427
  Receipt Date: 20050329
  Transmission Date: 20051028
  Serious: Yes (Life-Threatening, Hospitalization)
  Sender: FDA-Public Use
  Company Number: PAR_0008_2005

PATIENT
  Age: 15 Year
  Sex: Female

DRUGS (4)
  1. VERAPAMIL [Suspect]
     Dosage: 7.2 G ONCE PO
     Route: 048
  2. PAROXETINE HCL [Suspect]
     Dosage: 240 MG ONCE PO
     Route: 048
  3. SERTRALINE HCL [Suspect]
     Dosage: DF
  4. CANNABINOIDS [Suspect]
     Dosage: DF

REACTIONS (20)
  - ANURIA [None]
  - ATRIOVENTRICULAR BLOCK FIRST DEGREE [None]
  - BLOOD CREATININE INCREASED [None]
  - BLOOD PHOSPHORUS DECREASED [None]
  - BLOOD PRESSURE SYSTOLIC DECREASED [None]
  - CARDIAC ARREST [None]
  - CARDIOMYOPATHY [None]
  - CONFUSIONAL STATE [None]
  - CORNEAL LIGHT REFLEX TEST ABNORMAL [None]
  - ELECTROMECHANICAL DISSOCIATION [None]
  - GRAND MAL CONVULSION [None]
  - HEART RATE DECREASED [None]
  - LUNG INFILTRATION [None]
  - MULTIPLE DRUG OVERDOSE [None]
  - PUPIL FIXED [None]
  - RESPIRATORY DISTRESS [None]
  - RHABDOMYOLYSIS [None]
  - SEROTONIN SYNDROME [None]
  - SINUS TACHYCARDIA [None]
  - TROPONIN I INCREASED [None]
